FAERS Safety Report 15516278 (Version 1)
Quarter: 2018Q4

REPORT INFORMATION
  Report Type: Spontaneous
  Country: ES (occurrence: ES)
  Receive Date: 20181017
  Receipt Date: 20181017
  Transmission Date: 20190205
  Serious: Yes (Other)
  Sender: FDA-Public Use
  Company Number: ES-ACCORD-073595

PATIENT
  Age: 60 Year
  Sex: Female
  Weight: 61 kg

DRUGS (1)
  1. OXALIPLATINO ACCORD [Suspect]
     Active Substance: OXALIPLATIN
     Indication: GASTRIC CANCER
     Dosage: XELOX WITH OXALI 130 MG / M2 EVERY 21 D
     Route: 042
     Dates: start: 20171023, end: 20171023

REACTIONS (8)
  - Nausea [Recovered/Resolved]
  - Dyspnoea [Recovered/Resolved]
  - Dysarthria [Recovered/Resolved]
  - Off label use [Unknown]
  - Hypertension [Recovered/Resolved]
  - Muscle spasms [Recovered/Resolved]
  - Hypersensitivity [Recovered/Resolved]
  - Dizziness [Recovered/Resolved]

NARRATIVE: CASE EVENT DATE: 20171023
